FAERS Safety Report 7434986-8 (Version None)
Quarter: 2011Q2

REPORT INFORMATION
  Report Type: 
  Country: None (occurrence: None)
  Receive Date: 20110415
  Receipt Date: 20110408
  Transmission Date: 20111010
  Serious: Yes (Other)
  Sender: FDA-Public Use
  Company Number: 2011SP016004

PATIENT
  Sex: Female

DRUGS (1)
  1. IMPLANON [Suspect]
     Indication: CONTRACEPTION
     Dosage: SBDE
     Dates: end: 20110406

REACTIONS (6)
  - MIGRAINE [None]
  - MEDICAL DEVICE COMPLICATION [None]
  - WEIGHT INCREASED [None]
  - DEVICE DISLOCATION [None]
  - DEVICE BREAKAGE [None]
  - PRURITUS [None]
